FAERS Safety Report 13512868 (Version 2)
Quarter: 2017Q2

REPORT INFORMATION
  Report Type: Spontaneous
  Country: BR (occurrence: BR)
  Receive Date: 20170504
  Receipt Date: 20170504
  Transmission Date: 20170830
  Serious: Yes (Disabling)
  Sender: FDA-Public Use
  Company Number: BR-ABBVIE-17P-020-1960811-00

PATIENT
  Sex: Female

DRUGS (4)
  1. DIDANOSINE. [Concomitant]
     Active Substance: DIDANOSINE
     Indication: PRODUCT USED FOR UNKNOWN INDICATION
     Dates: end: 201612
  2. LAMIVUDINE. [Interacting]
     Active Substance: LAMIVUDINE
     Indication: PRODUCT USED FOR UNKNOWN INDICATION
     Route: 065
  3. KALETRA [Suspect]
     Active Substance: LOPINAVIR\RITONAVIR
     Indication: HIV INFECTION
     Route: 048
  4. ABACAVIR. [Interacting]
     Active Substance: ABACAVIR
     Indication: HIV INFECTION
     Route: 065
     Dates: start: 20170402

REACTIONS (6)
  - Drug interaction [Unknown]
  - Disability [Unknown]
  - Hypersensitivity [Unknown]
  - CD4 lymphocytes increased [Unknown]
  - Weight decreased [Unknown]
  - Drug level changed [Unknown]
